FAERS Safety Report 9336616 (Version 1)
Quarter: 2013Q2

REPORT INFORMATION
  Report Type: Spontaneous
  Country: US (occurrence: US)
  Receive Date: 20130607
  Receipt Date: 20130607
  Transmission Date: 20140414
  Serious: Yes (Death)
  Sender: FDA-Public Use
  Company Number: US-ROCHE-1232392

PATIENT
  Sex: Female
  Weight: 79 kg

DRUGS (13)
  1. XELODA [Suspect]
     Indication: PRODUCT USED FOR UNKNOWN INDICATION
     Route: 048
  2. TYKERB [Suspect]
     Indication: PRODUCT USED FOR UNKNOWN INDICATION
     Route: 048
     Dates: start: 201109
  3. TYKERB [Suspect]
     Route: 048
  4. AMLODIPINE [Concomitant]
  5. TRILEPTAL [Concomitant]
  6. HYDRALAZINE [Concomitant]
  7. LEVOTHYROXINE [Concomitant]
  8. CLONIDINE [Concomitant]
  9. METOPROLOL [Concomitant]
     Route: 065
  10. PRILOSEC [Concomitant]
  11. OXCARBAZEPINE [Concomitant]
  12. THYROXINE SODIUM [Concomitant]
  13. LAPATINIB [Concomitant]
     Route: 065

REACTIONS (8)
  - Death [Fatal]
  - Skin discolouration [Unknown]
  - Skin discolouration [Unknown]
  - Vomiting [Unknown]
  - Diarrhoea [Unknown]
  - Oral disorder [Unknown]
  - Lip neoplasm [Unknown]
  - Chest pain [Unknown]
